FAERS Safety Report 5386823-3 (Version None)
Quarter: 2007Q3

REPORT INFORMATION
  Report Type: 
  Country: None (occurrence: None)
  Receive Date: 20070713
  Receipt Date: 20070702
  Transmission Date: 20080115
  Serious: Yes (Hospitalization, Other)
  Sender: FDA-Public Use
  Company Number: US-PFIZER INC-2007016199

PATIENT
  Sex: Female
  Weight: 79.8 kg

DRUGS (6)
  1. BEXTRA [Suspect]
     Indication: ARTHRITIS
  2. VIOXX [Suspect]
     Indication: PAIN
     Route: 048
     Dates: start: 20040101
  3. ALTACE [Concomitant]
     Indication: HYPERTENSION
  4. CIPROFLOXACIN [Concomitant]
     Indication: BACTERIAL INFECTION
  5. GLIPIZIDE [Concomitant]
     Indication: DIABETES MELLITUS
  6. TRIAMTERENE [Concomitant]

REACTIONS (2)
  - CARDIAC FAILURE CONGESTIVE [None]
  - CORONARY ARTERY DISEASE [None]
